FAERS Safety Report 10399603 (Version 3)
Quarter: 2014Q3

REPORT INFORMATION
  Report Type: Report from Study
  Country: FR (occurrence: FR)
  Receive Date: 20140821
  Receipt Date: 20140922
  Transmission Date: 20150326
  Serious: Yes (Death, Hospitalization, Other)
  Sender: FDA-Public Use
  Company Number: FR-TEVA-499199ISR

PATIENT
  Age: 81 Year
  Sex: Female

DRUGS (9)
  1. INEXIUM [Concomitant]
     Active Substance: ESOMEPRAZOLE
     Dosage: 40 MILLIGRAM DAILY;
     Route: 048
  2. AMOXICILLINE [Concomitant]
     Active Substance: AMOXICILLIN
     Dosage: 3 GRAM DAILY;
     Route: 048
  3. TEVAGRASTIM 30MUI/0.5ML [Suspect]
     Active Substance: FILGRASTIM
     Dosage: 1 DOSAGE FORMS DAILY;
     Route: 058
     Dates: start: 20140721, end: 20140722
  4. LASILIX [Concomitant]
     Active Substance: FUROSEMIDE
     Dosage: 20 MILLIGRAM DAILY;
     Route: 048
  5. SOLUPRED [Concomitant]
     Active Substance: PREDNISOLONE
     Dosage: 60 MILLIGRAM DAILY;
     Route: 048
  6. ALPRAZOLAM. [Concomitant]
     Active Substance: ALPRAZOLAM
     Dosage: .25 MILLIGRAM DAILY;
     Route: 048
  7. PLITICAN [Concomitant]
     Active Substance: ALIZAPRIDE HYDROCHLORIDE
     Route: 042
  8. PARACETAMOL [Concomitant]
     Active Substance: ACETAMINOPHEN
     Dosage: 3 GRAM DAILY;
     Route: 042
  9. TOPOTECAN [Concomitant]
     Active Substance: TOPOTECAN\TOPOTECAN HYDROCHLORIDE
     Indication: OVARIAN CANCER
     Dates: start: 20140721

REACTIONS (6)
  - Hyperthermia [Unknown]
  - Erysipelas [Unknown]
  - Malnutrition [Unknown]
  - Weight increased [Recovering/Resolving]
  - Death [Fatal]
  - Oedema peripheral [Recovering/Resolving]

NARRATIVE: CASE EVENT DATE: 201407
